FAERS Safety Report 5447554-4 (Version None)
Quarter: 2007Q3

REPORT INFORMATION
  Report Type: 
  Country: None (occurrence: None)
  Receive Date: 20070905
  Receipt Date: 20070905
  Transmission Date: 20080115
  Serious: Yes (Hospitalization)
  Sender: FDA-Public Use
  Company Number: None

PATIENT
  Age: 43 Year
  Sex: Female
  Weight: 70.3075 kg

DRUGS (1)
  1. MIRENA [Suspect]
     Indication: CONTRACEPTION
     Dosage: REPLACE EVERY 5 YE
     Dates: start: 20061227, end: 20070827

REACTIONS (6)
  - ANAEMIA [None]
  - ANGER [None]
  - ANXIETY [None]
  - IUCD COMPLICATION [None]
  - MUSCLE SPASMS [None]
  - VAGINAL HAEMORRHAGE [None]
